FAERS Safety Report 4446918-5 (Version None)
Quarter: 2004Q3

REPORT INFORMATION
  Report Type: 
  Country: None (occurrence: None)
  Receive Date: 20040908
  Receipt Date: 20040824
  Transmission Date: 20050211
  Serious: Yes (Hospitalization)
  Sender: FDA-Public Use
  Company Number: 2002-04764

PATIENT
  Age: 50 Year
  Sex: Male
  Weight: 68.4932 kg

DRUGS (10)
  1. TENOFOVIR DF (TENOFOVIR DISOPROXIL FUMARATE) [Suspect]
     Indication: HIV INFECTION
     Dosage: 300 MG, 1 IN 1 D, ORAL
     Route: 048
     Dates: start: 20020129
  2. KALETRA [Concomitant]
  3. NEVIRAPINE (NEVIRAPINE) [Concomitant]
  4. DIDANOSINE [Concomitant]
  5. LAMIVUDINE (LAMIVUDINE) [Concomitant]
  6. TESTOSTERONE [Concomitant]
  7. ZOLOFT [Concomitant]
  8. AMITRIPTYLINE HCL [Concomitant]
  9. LIPIDIL [Concomitant]
  10. LOSEC (OMEPRAZOLE) [Concomitant]

REACTIONS (29)
  - ADENOMA BENIGN [None]
  - ANGINA PECTORIS [None]
  - AREFLEXIA [None]
  - ATAXIA [None]
  - BALANCE DISORDER [None]
  - BLOOD LACTATE DEHYDROGENASE INCREASED [None]
  - CHEST DISCOMFORT [None]
  - CONFUSIONAL STATE [None]
  - COORDINATION ABNORMAL [None]
  - CRYPTOCOCCOSIS [None]
  - CSF PRESSURE INCREASED [None]
  - CSF PROTEIN INCREASED [None]
  - CSF WHITE BLOOD CELL COUNT INCREASED [None]
  - DEPRESSION [None]
  - DIFFICULTY IN WALKING [None]
  - DISTURBANCE IN ATTENTION [None]
  - DIZZINESS [None]
  - FATIGUE [None]
  - LACUNAR INFARCTION [None]
  - LOSS OF PROPRIOCEPTION [None]
  - MEMORY IMPAIRMENT [None]
  - NAUSEA [None]
  - NYSTAGMUS [None]
  - PITUITARY TUMOUR BENIGN [None]
  - PSEUDOCYST [None]
  - SENSORY DISTURBANCE [None]
  - VERTIGO [None]
  - VESTIBULAR DISORDER [None]
  - VOMITING [None]
